FAERS Safety Report 16935543 (Version 1)
Quarter: 2019Q4

REPORT INFORMATION
  Report Type: Spontaneous
  Country: US (occurrence: US)
  Receive Date: 20190827
  Receipt Date: 20190827
  Transmission Date: 20200122
  Serious: Yes (Hospitalization)
  Sender: FDA-Public Use
  Company Number: None

PATIENT
  Age: 56 Year
  Sex: Female

DRUGS (16)
  1. CARVEDIOLOL [Concomitant]
  2. SILDENAFIL. [Concomitant]
     Active Substance: SILDENAFIL
  3. ALLOPURINOL. [Concomitant]
     Active Substance: ALLOPURINOL
  4. AMLODIPINE [Concomitant]
     Active Substance: AMLODIPINE BESYLATE
  5. TAMOXIFEN [Concomitant]
     Active Substance: TAMOXIFEN
  6. WARFARIN [Concomitant]
     Active Substance: WARFARIN
  7. SILDENAFIL 20MG [Suspect]
     Active Substance: SILDENAFIL
     Indication: PULMONARY HYPERTENSION
     Route: 048
  8. HUMALOG [Concomitant]
     Active Substance: INSULIN LISPRO
  9. POT CHLOR [Concomitant]
  10. SENNA S [Concomitant]
     Active Substance: DOCUSATE SODIUM\SENNA LEAF
  11. AMODARONE [Concomitant]
  12. HYDRALAZINE [Concomitant]
     Active Substance: HYDRALAZINE HYDROCHLORIDE
  13. ASPIRIN. [Concomitant]
     Active Substance: ASPIRIN
  14. BUMETADINE [Concomitant]
     Active Substance: BUMETANIDE
  15. FESUL [Concomitant]
  16. LANTUS [Concomitant]
     Active Substance: INSULIN GLARGINE

REACTIONS (1)
  - Hospitalisation [None]

NARRATIVE: CASE EVENT DATE: 2019
